FAERS Safety Report 15630607 (Version 4)
Quarter: 2019Q3

REPORT INFORMATION
  Report Type: Report from Study
  Country: US (occurrence: US)
  Receive Date: 20181119
  Receipt Date: 20190812
  Transmission Date: 20191004
  Serious: Yes (Other)
  Sender: FDA-Public Use
  Company Number: PHEH2018US048321

PATIENT
  Age: 30 Year
  Sex: Female

DRUGS (1)
  1. GILENYA [Suspect]
     Active Substance: FINGOLIMOD HYDROCHLORIDE
     Indication: MULTIPLE SCLEROSIS
     Dosage: 0.5 MG, QD
     Route: 048
     Dates: start: 20180205

REACTIONS (7)
  - Rash [Not Recovered/Not Resolved]
  - Diarrhoea [Recovering/Resolving]
  - Abdominal discomfort [Recovering/Resolving]
  - Visual impairment [Recovered/Resolved]
  - Influenza [Recovered/Resolved]
  - Gastrointestinal infection [Recovering/Resolving]
  - Visual field defect [Not Recovered/Not Resolved]

NARRATIVE: CASE EVENT DATE: 20180901
